FAERS Safety Report 10932624 (Version 1)
Quarter: 2015Q1

REPORT INFORMATION
  Report Type: Spontaneous
  Country: US (occurrence: None)
  Receive Date: 20150319
  Receipt Date: 20150319
  Transmission Date: 20150721
  Serious: Yes (Disabling)
  Sender: FDA-Public Use
  Company Number: None

PATIENT
  Age: 39 Year
  Sex: Female
  Weight: 53.52 kg

DRUGS (9)
  1. GABAPENTIN. [Concomitant]
     Active Substance: GABAPENTIN
  2. LEVOFLOXACIN 500MG ZYDUS [Suspect]
     Active Substance: LEVOFLOXACIN
     Dosage: 1 PILL
     Route: 048
     Dates: start: 20150108, end: 20150112
  3. FIBER [Concomitant]
     Active Substance: PSYLLIUM HUSK
  4. CLONAZEPAM. [Concomitant]
     Active Substance: CLONAZEPAM
  5. RON 1-METHYL FOLATE [Concomitant]
  6. CYMBALTA [Concomitant]
     Active Substance: DULOXETINE HYDROCHLORIDE
  7. MULTI VITAMIN [Concomitant]
     Active Substance: VITAMINS
  8. LEVOTHYROXIN [Concomitant]
     Active Substance: LEVOTHYROXINE
  9. ANGELIQ [Concomitant]
     Active Substance: DROSPIRENONE\ESTRADIOL

REACTIONS (7)
  - Pain in extremity [None]
  - Tendonitis [None]
  - Dyskinesia [None]
  - Pain [None]
  - Fatigue [None]
  - Muscle twitching [None]
  - Muscle fatigue [None]

NARRATIVE: CASE EVENT DATE: 20150113
